FAERS Safety Report 14179981 (Version 7)
Quarter: 2018Q1

REPORT INFORMATION
  Report Type: Spontaneous
  Country: GB (occurrence: GB)
  Receive Date: 20171110
  Receipt Date: 20180228
  Transmission Date: 20180508
  Serious: Yes (Other)
  Sender: FDA-Public Use
  Company Number: GB-009507513-1711GBR000436

PATIENT
  Age: 28 Year
  Sex: Female
  Weight: 72 kg

DRUGS (2)
  1. NEXPLANON [Suspect]
     Active Substance: ETONOGESTREL
     Indication: CONTRACEPTION
     Dosage: AN IMPLANT
     Route: 059
     Dates: start: 20160323, end: 20170116
  2. NEXPLANON [Suspect]
     Active Substance: ETONOGESTREL
     Dosage: AN IMPLANT
     Route: 059

REACTIONS (2)
  - Device related infection [Recovered/Resolved]
  - Staphylococcal infection [Recovered/Resolved]

NARRATIVE: CASE EVENT DATE: 20170116
